FAERS Safety Report 10434717 (Version 1)
Quarter: 2014Q3

REPORT INFORMATION
  Report Type: Spontaneous
  Country: US (occurrence: None)
  Receive Date: 20140815
  Receipt Date: 20140815
  Transmission Date: 20150326
  Serious: No
  Sender: FDA-Public Use
  Company Number: 2014TUS002674

PATIENT
  Age: 22 Year
  Sex: Female
  Weight: 58.5 kg

DRUGS (1)
  1. BRINTELLIX [Suspect]
     Active Substance: VORTIOXETINE HYDROBROMIDE
     Indication: MAJOR DEPRESSION
     Route: 048
     Dates: start: 20140317, end: 20140401

REACTIONS (5)
  - Dyspnoea [None]
  - Paraesthesia [None]
  - Nausea [None]
  - Rash generalised [None]
  - Vomiting [None]

NARRATIVE: CASE EVENT DATE: 20140317
